FAERS Safety Report 5694203-6 (Version None)
Quarter: 2008Q2

REPORT INFORMATION
  Report Type: 
  Country: None (occurrence: None)
  Receive Date: 20080402
  Receipt Date: 20080320
  Transmission Date: 20081010
  Serious: Yes (Other)
  Sender: FDA-Public Use
  Company Number: 2008US000823

PATIENT
  Age: 27 Year
  Sex: Male

DRUGS (7)
  1. AMBISOME [Suspect]
     Indication: ACUTE MYELOID LEUKAEMIA
  2. LINEZOLID [Suspect]
     Indication: ENTEROCOCCAL INFECTION
  3. MEPERIDINE(PETHIDINE) [Suspect]
     Indication: PREMEDICATION
  4. TIMENTIN (TICARCILLIN DISODIUM, CLAVULANIC ACID) [Concomitant]
  5. TOBRAMYCIN [Concomitant]
  6. CYTARABINE [Concomitant]
  7. DAUNORUBICIN HCL [Concomitant]

REACTIONS (4)
  - CHILLS [None]
  - HALLUCINATION, VISUAL [None]
  - SEPSIS [None]
  - SEROTONIN SYNDROME [None]
